FAERS Safety Report 8301226 (Version 2)
Quarter: 2012Q4

REPORT INFORMATION
  Report Type: 
  Country: US (occurrence: US)
  Receive Date: 20111219
  Receipt Date: 20120917
  Transmission Date: 20130627
  Serious: No
  Sender: FDA-Public Use
  Company Number: US-ASTRAZENECA-2011SE53121

PATIENT
  Age: 74 Year
  Sex: Male

DRUGS (18)
  1. OMEPRAZOLE [Suspect]
     Route: 048
  2. CRESTOR [Suspect]
     Route: 048
  3. CRESTOR [Suspect]
     Route: 048
  4. COREG [Concomitant]
  5. VITAMIN D [Concomitant]
  6. PLAVIX [Concomitant]
  7. NITROGLYCERINE [Concomitant]
  8. AMLODIPINE [Concomitant]
  9. POTASSIUM CHLORIDE [Concomitant]
  10. ASPIRIN [Concomitant]
  11. IMDUR [Concomitant]
  12. METFORMIN [Concomitant]
  13. GLIMEPIRIDE [Concomitant]
  14. FLOMAX [Concomitant]
  15. NIACIN [Concomitant]
  16. HYZAAR [Concomitant]
  17. PROBIOTIC [Concomitant]
  18. IMMODIUM [Concomitant]

REACTIONS (5)
  - Colitis [Unknown]
  - Cardiac failure congestive [Unknown]
  - Blood cholesterol decreased [Unknown]
  - Gastrointestinal toxicity [Unknown]
  - Urinary tract infection [Recovered/Resolved]
